FAERS Safety Report 9835932 (Version 2)
Quarter: 2014Q1

REPORT INFORMATION
  Report Type: Spontaneous
  Country: JP (occurrence: JP)
  Receive Date: 20140122
  Receipt Date: 20140122
  Transmission Date: 20141002
  Serious: Yes (Hospitalization)
  Sender: FDA-Public Use
  Company Number: JP-TAKEDA-TCI2013A04425

PATIENT
  Age: 64 Year
  Sex: Male

DRUGS (2)
  1. NESINA TABLETS 25MG [Suspect]
     Indication: TYPE 2 DIABETES MELLITUS
     Dosage: UNK
     Route: 048
  2. PIOGLITAZONE [Suspect]
     Dosage: UNK
     Route: 048

REACTIONS (1)
  - Photosensitivity reaction [Unknown]
